FAERS Safety Report 10227218 (Version 1)
Quarter: 2014Q2

REPORT INFORMATION
  Report Type: Spontaneous
  Country: US (occurrence: None)
  Receive Date: 20140606
  Receipt Date: 20140606
  Transmission Date: 20141212
  Serious: Yes (Death, Hospitalization)
  Sender: FDA-Public Use
  Company Number: US-2014-0873

PATIENT
  Sex: Female

DRUGS (6)
  1. VINORELBINE INN (VINORELBINE TARTRATE) SOLUTION FOR INJECTION [Suspect]
     Indication: BREAST CANCER STAGE IV
     Dosage: DAY 8 AND DAY 15, CYCLICAL (1/21)
     Route: 042
  2. DOCETAXEL (DOCETAXEL) [Suspect]
     Indication: BREAST CANCER STAGE IV
     Dosage: DAY 1, CYCLICAL (1/21)
     Route: 042
  3. DEXAMETHASONE [Suspect]
     Indication: HYPERSENSITIVITY
     Dosage: DURING 3 DAYS
  4. DEXAMETHASONE [Suspect]
     Indication: FLUID RETENTION
     Dosage: DURING 3 DAYS
  5. DEXAMETHASONE [Suspect]
     Indication: PROPHYLAXIS
     Dosage: DURING 3 DAYS
  6. FILGRASTIM (FILGRASTIM) [Concomitant]

REACTIONS (2)
  - Neutropenic sepsis [None]
  - Diabetes mellitus inadequate control [None]
